FAERS Safety Report 18042228 (Version 2)
Quarter: 2020Q3

REPORT INFORMATION
  Report Type: Report from Study
  Country: US (occurrence: US)
  Receive Date: 20200720
  Receipt Date: 20200817
  Transmission Date: 20201103
  Serious: Yes (Other)
  Sender: FDA-Public Use
  Company Number: US-BIOVITRUM-2020US2256

PATIENT
  Sex: Female

DRUGS (2)
  1. REVLIMID [Suspect]
     Active Substance: LENALIDOMIDE
  2. KINERET [Suspect]
     Active Substance: ANAKINRA
     Indication: RHEUMATOID ARTHRITIS
     Route: 058
     Dates: start: 20190423

REACTIONS (6)
  - Sinusitis [Unknown]
  - Neoplasm malignant [Unknown]
  - Migraine [Unknown]
  - Illness [Recovered/Resolved]
  - Arthralgia [Unknown]
  - Drug interaction [Unknown]
